FAERS Safety Report 10794613 (Version 1)
Quarter: 2015Q1

REPORT INFORMATION
  Report Type: Spontaneous
  Country: US (occurrence: US)
  Receive Date: 20150213
  Receipt Date: 20150213
  Transmission Date: 20150721
  Serious: No
  Sender: FDA-Public Use
  Company Number: US-ASTRAZENECA-2015SE11045

PATIENT
  Sex: Female

DRUGS (2)
  1. CRESTOR [Suspect]
     Active Substance: ROSUVASTATIN CALCIUM
     Route: 048
  2. ZETIA [Concomitant]
     Active Substance: EZETIMIBE
     Route: 065

REACTIONS (2)
  - Blood cholesterol increased [Unknown]
  - Low density lipoprotein abnormal [Unknown]
